FAERS Safety Report 15696592 (Version 1)
Quarter: 2018Q4

REPORT INFORMATION
  Report Type: Spontaneous
  Country: US (occurrence: US)
  Receive Date: 20181206
  Receipt Date: 20181206
  Transmission Date: 20190205
  Serious: No
  Sender: FDA-Public Use
  Company Number: US-SUPERNUS PHARMACEUTICALS, INC.-2018SUP00031

PATIENT
  Age: 32 Year
  Sex: Male
  Weight: 55.78 kg

DRUGS (9)
  1. OXTELLAR XR [Suspect]
     Active Substance: OXCARBAZEPINE
     Indication: MULTIPLE SCLEROSIS
     Dosage: 600 MG, 2X/DAY (MORNING AND EVENING)
     Route: 048
  2. KEPPRA [Concomitant]
     Active Substance: LEVETIRACETAM
  3. VITAMIN D [Concomitant]
     Active Substance: CHOLECALCIFEROL
  4. LAMICTAL [Concomitant]
     Active Substance: LAMOTRIGINE
     Dosage: 300 MG, 1X/DAY AT NIGHT
  5. OXTELLAR XR [Suspect]
     Active Substance: OXCARBAZEPINE
     Indication: EPILEPSY
     Dosage: 300 MG, 1X/DAY IN THE EVENING
     Route: 048
     Dates: start: 2016
  6. LAMICTAL [Concomitant]
     Active Substance: LAMOTRIGINE
     Dosage: 150 MG, 1X/DAY IN THE MORNING
  7. OXTELLAR XR [Suspect]
     Active Substance: OXCARBAZEPINE
     Indication: MULTIPLE SCLEROSIS
     Dosage: 300 MG, 1X/DAY IN THE EVENING
     Route: 048
  8. COPAXONE [Concomitant]
     Active Substance: GLATIRAMER ACETATE
     Dosage: 40 MG, 3X/WEEK
  9. OXTELLAR XR [Suspect]
     Active Substance: OXCARBAZEPINE
     Indication: EPILEPSY
     Dosage: 600 MG, 2X/DAY (MORNING AND EVENING)
     Route: 048
     Dates: start: 2016

REACTIONS (5)
  - Weight increased [Unknown]
  - Dizziness [Not Recovered/Not Resolved]
  - Weight decreased [Not Recovered/Not Resolved]
  - Disease prodromal stage [Recovered/Resolved]
  - Inappropriate schedule of product administration [Not Recovered/Not Resolved]

NARRATIVE: CASE EVENT DATE: 2016
